FAERS Safety Report 6818510-6 (Version None)
Quarter: 2010Q3

REPORT INFORMATION
  Report Type: 
  Country: None (occurrence: None)
  Receive Date: 20100706
  Receipt Date: 20080924
  Transmission Date: 20110219
  Serious: Yes (Other)
  Sender: FDA-Public Use
  Company Number: US-PFIZER INC-2008071550

PATIENT
  Sex: Female
  Weight: 52 kg

DRUGS (3)
  1. ZITHROMAC [Suspect]
     Indication: CONNECTIVE TISSUE DISORDER
     Dates: start: 20080101
  2. MINOCYCLINE [Suspect]
     Indication: CONNECTIVE TISSUE DISORDER
     Dates: start: 20080101, end: 20080101
  3. ALLEGRA [Concomitant]

REACTIONS (4)
  - CONNECTIVE TISSUE DISORDER [None]
  - DEAFNESS [None]
  - SINUSITIS [None]
  - VERTIGO [None]
